FAERS Safety Report 9890795 (Version 1)
Quarter: 2014Q1

REPORT INFORMATION
  Report Type: Spontaneous
  Country: US (occurrence: None)
  Receive Date: 20140210
  Receipt Date: 20140210
  Transmission Date: 20141002
  Serious: Yes (Hospitalization)
  Sender: FDA-Public Use
  Company Number: JK968(27)

PATIENT
  Age: 73 Year
  Sex: Male

DRUGS (2)
  1. RICOLA SWEET CHERRY HERB THROAT DROPS SUGAR FREE [Suspect]
     Indication: OROPHARYNGEAL PAIN
     Dosage: 1-2 DROPS ORALLY
     Route: 048
  2. RICOLA SWEET CHERRY HERB THROAT DROPS SUGAR FREE [Suspect]
     Indication: ORAL PAIN
     Dosage: 1-2 DROPS ORALLY
     Route: 048

REACTIONS (1)
  - Hallucination [None]
